FAERS Safety Report 15496733 (Version 2)
Quarter: 2018Q4

REPORT INFORMATION
  Report Type: Spontaneous
  Country: GB (occurrence: GB)
  Receive Date: 20181014
  Receipt Date: 20181205
  Transmission Date: 20190205
  Serious: Yes (Other)
  Sender: FDA-Public Use
  Company Number: PHHY2018GB111488

PATIENT
  Age: 53 Year
  Sex: Male

DRUGS (4)
  1. ETHAMBUTOL [Suspect]
     Active Substance: ETHAMBUTOL HYDROCHLORIDE
     Indication: PULMONARY TUBERCULOSIS
     Dosage: 1300 MG, UNK
     Route: 065
  2. PYRIDOXINE HYDROCHLORIDE. [Suspect]
     Active Substance: PYRIDOXINE HYDROCHLORIDE
     Indication: PULMONARY TUBERCULOSIS
     Dosage: 10 MG, UNK
     Route: 065
  3. RIFATER [Suspect]
     Active Substance: ISONIAZID\PYRAZINAMIDE\RIFAMPIN
     Indication: PULMONARY TUBERCULOSIS
     Route: 065
  4. RIFAMPICIN [Suspect]
     Active Substance: RIFAMPIN
     Indication: PULMONARY TUBERCULOSIS
     Dosage: 300 MG, UNK
     Route: 065

REACTIONS (7)
  - Dizziness [Recovering/Resolving]
  - Rash erythematous [Recovering/Resolving]
  - Rash generalised [Recovering/Resolving]
  - Conjunctival hyperaemia [Recovering/Resolving]
  - Hepatotoxicity [Recovering/Resolving]
  - Red man syndrome [Recovering/Resolving]
  - Drug hypersensitivity [Recovering/Resolving]
